FAERS Safety Report 16189663 (Version 2)
Quarter: 2019Q2

REPORT INFORMATION
  Report Type: Spontaneous
  Country: DE (occurrence: DE)
  Receive Date: 20190412
  Receipt Date: 20190610
  Transmission Date: 20190711
  Serious: Yes (Hospitalization, Disabling)
  Sender: FDA-Public Use
  Company Number: PHHY2019DE079532

PATIENT
  Age: 66 Year
  Sex: Male

DRUGS (7)
  1. LERCANIDIPINE [Concomitant]
     Active Substance: LERCANIDIPINE
     Indication: PRODUCT USED FOR UNKNOWN INDICATION
     Dosage: 20 MG, QD (DAILY DOSE: 20 MG MILLGRAM(S) EVERY DAYS)
     Route: 048
  2. PANTOPRAZOL [Concomitant]
     Active Substance: PANTOPRAZOLE SODIUM
     Indication: PRODUCT USED FOR UNKNOWN INDICATION
     Dosage: 40 MG, QD (DAILY DOSE: 40 MG MILLGRAM(S) EVERY DAYS)
     Route: 048
  3. MOXONIDIN [Concomitant]
     Active Substance: MOXONIDINE
     Dosage: 0.3 MG, QD
     Route: 065
  4. TAMSULOSIN [Concomitant]
     Active Substance: TAMSULOSIN
     Indication: PRODUCT USED FOR UNKNOWN INDICATION
     Dosage: 0.4 MG, QD (DAILY DOSE: 0.4 MG MILLGRAM(S) EVERY DAYS)
     Route: 048
  5. COSENTYX [Suspect]
     Active Substance: SECUKINUMAB
     Indication: PSORIASIS
     Dosage: 150 MG, UNK (EVERY 4 WEEKS)
     Route: 065
     Dates: start: 201708
  6. MOXONIDIN [Concomitant]
     Active Substance: MOXONIDINE
     Indication: PRODUCT USED FOR UNKNOWN INDICATION
     Dosage: 0.2 MG, QD (DAILY DOSE: 0.2 MG MILLGRAM(S) EVERY DAYS)
     Route: 048
  7. ENALAPRIL [Concomitant]
     Active Substance: ENALAPRIL
     Indication: PRODUCT USED FOR UNKNOWN INDICATION
     Dosage: 40 MG, QD (DAILY DOSE: 40 MG MILLGRAM(S) EVERY DAYS)
     Route: 048

REACTIONS (14)
  - Psoriasis [Unknown]
  - Prostatomegaly [Unknown]
  - Respiratory distress [Unknown]
  - Autoimmune thyroiditis [Unknown]
  - Hepatic steatosis [Unknown]
  - Nephrolithiasis [Unknown]
  - Peristalsis visible [Unknown]
  - Pancreatic steatosis [Unknown]
  - Hypertension [Unknown]
  - Hypothyroidism [Unknown]
  - Obesity [Unknown]
  - Hypertensive heart disease [Unknown]
  - Renal cyst [Unknown]
  - Hyperlipidaemia [Unknown]

NARRATIVE: CASE EVENT DATE: 20190313
